FAERS Safety Report 9160920 (Version 2)
Quarter: 2013Q2

REPORT INFORMATION
  Report Type: Spontaneous
  Country: US (occurrence: None)
  Receive Date: 20130215
  Receipt Date: 20130530
  Transmission Date: 20140414
  Serious: Yes (Hospitalization)
  Sender: FDA-Public Use
  Company Number: ACO_34177_2013

PATIENT
  Age: 57 Year
  Sex: Male
  Weight: 72.6 kg

DRUGS (8)
  1. AMPYRA [Suspect]
     Indication: GAIT DISTURBANCE
     Route: 048
     Dates: start: 201105, end: 201210
  2. TERIFLUNOMIDE [Suspect]
     Indication: MULTIPLE SCLEROSIS
     Route: 048
     Dates: start: 201212
  3. SOLU-MEDROL (METHYLPREDNISOLONE SODIUM SUCCINATE) [Suspect]
     Indication: GAIT DISTURBANCE
  4. NORVASC (AMLODIPINE BESILATE) [Concomitant]
  5. TENORMIN (ATENOLOL) [Concomitant]
  6. NEURONTIN (GABAPENTIN) [Concomitant]
  7. INDOCIN (INDOMETACIN) [Concomitant]
  8. METHOTREXATE [Concomitant]

REACTIONS (5)
  - Pneumonia [None]
  - Respiratory tract inflammation [None]
  - Dysphagia [None]
  - Immunosuppression [None]
  - Gait disturbance [None]
